FAERS Safety Report 8842192 (Version 1)
Quarter: 2012Q4

REPORT INFORMATION
  Report Type: Spontaneous
  Country: US (occurrence: None)
  Receive Date: 20121015
  Receipt Date: 20121015
  Transmission Date: 20130627
  Serious: No
  Sender: FDA-Public Use
  Company Number: None

PATIENT
  Age: 56 Year
  Sex: Female
  Weight: 62.14 kg

DRUGS (4)
  1. LISINOPRIL [Suspect]
     Indication: INVESTIGATION
     Route: 048
     Dates: start: 20120619, end: 20120809
  2. LISINOPRIL [Suspect]
     Indication: CARDIAC DISORDER PROPHYLAXIS
     Route: 048
     Dates: start: 20120619, end: 20120809
  3. TAXOTERE [Concomitant]
  4. CARBO + HERCEPTIN [Concomitant]

REACTIONS (1)
  - Platelet count decreased [None]
